FAERS Safety Report 15253490 (Version 1)
Quarter: 2018Q3

REPORT INFORMATION
  Report Type: Spontaneous
  Country: DE (occurrence: DE)
  Receive Date: 20180808
  Receipt Date: 20180808
  Transmission Date: 20181010
  Serious: Yes (Other)
  Sender: FDA-Public Use
  Company Number: DE-SUN PHARMACEUTICAL INDUSTRIES LTD-2018RR-180811

PATIENT
  Age: 1 Day
  Sex: Female
  Weight: 2.31 kg

DRUGS (6)
  1. CITALOPRAM [Suspect]
     Active Substance: CITALOPRAM HYDROBROMIDE
     Indication: DEPRESSION
     Dosage: 20 [MG/D ]
     Route: 064
     Dates: start: 20170421, end: 20180108
  2. VAGI?HEX [Concomitant]
     Indication: VAGINAL INFECTION
     Dosage: 20 [MG/D (2X10) ]/ HOW LONG?
     Route: 064
  3. CELESTAN [Concomitant]
     Active Substance: BETAMETHASONE
     Indication: MATERNAL THERAPY TO ENHANCE FOETAL LUNG MATURITY
     Dosage: 24 [MG/D ]
     Route: 064
  4. FOLIC ACID. [Concomitant]
     Active Substance: FOLIC ACID
     Indication: PROPHYLAXIS OF NEURAL TUBE DEFECT
     Dosage: BEGIN GESTATIONAL WEEK 4 OR 12. PROBABLY 0.4 MG/D ()
     Route: 064
  5. FRAGMIN P FORTE [Concomitant]
     Active Substance: DALTEPARIN SODIUM
     Indication: THROMBOSIS PROPHYLAXIS
     Dosage: 5000 [IE/D ]/ UNTIL WHEN? BECAUSE OF BED REST AT CERVICAL INCOMPETENCE
     Route: 064
  6. FOLIC ACID. [Concomitant]
     Active Substance: FOLIC ACID
     Indication: METHYLENETETRAHYDROFOLATE REDUCTASE GENE MUTATION
     Dosage: 5 [MG/D (ALLE 2 TAGE) ]
     Route: 064
     Dates: start: 20170421, end: 20180118

REACTIONS (1)
  - Small for dates baby [Recovering/Resolving]

NARRATIVE: CASE EVENT DATE: 20180118
